FAERS Safety Report 10372622 (Version 1)
Quarter: 2014Q3

REPORT INFORMATION
  Report Type: Spontaneous
  Country: TR (occurrence: TR)
  Receive Date: 20140808
  Receipt Date: 20140808
  Transmission Date: 20150326
  Serious: Yes (Other)
  Sender: FDA-Public Use
  Company Number: PHHY2014TR096054

PATIENT
  Sex: Male
  Weight: 3.8 kg

DRUGS (3)
  1. ADENOSINE. [Suspect]
     Active Substance: ADENOSINE
     Route: 064
  2. METOPROLOL [Suspect]
     Active Substance: METOPROLOL
     Route: 064
  3. AMIODARONE [Suspect]
     Active Substance: AMIODARONE
     Route: 064

REACTIONS (2)
  - Foetal distress syndrome [Unknown]
  - Foetal exposure during pregnancy [Unknown]
